FAERS Safety Report 8539037-X (Version None)
Quarter: 2012Q3

REPORT INFORMATION
  Report Type: 
  Country: None (occurrence: None)
  Receive Date: 20120726
  Receipt Date: 20120723
  Transmission Date: 20120928
  Serious: Yes (Hospitalization, Other)
  Sender: FDA-Public Use
  Company Number: PHEH2009US09834

PATIENT
  Sex: Female

DRUGS (12)
  1. AREDIA [Suspect]
     Indication: HYPERCALCAEMIA
     Dosage: 90 MG,
     Route: 042
  2. REVLIMID [Suspect]
  3. DARVOCET-N 50 [Concomitant]
  4. ZOMETA [Suspect]
     Indication: MULTIPLE MYELOMA
     Route: 042
     Dates: start: 20090101, end: 20090401
  5. AMOXICILLIN [Concomitant]
  6. VICODIN [Concomitant]
  7. TYLENOL [Concomitant]
  8. MORPHINE SULFATE [Concomitant]
  9. NEXIUM [Concomitant]
  10. RADIATION THERAPY [Concomitant]
  11. THALIDOMIDE [Suspect]
  12. CHEMOTHERAPEUTICS NOS [Concomitant]

REACTIONS (47)
  - SENSITIVITY OF TEETH [None]
  - MASTICATION DISORDER [None]
  - GASTRITIS [None]
  - OSTEOPOROSIS [None]
  - NEUROPATHY PERIPHERAL [None]
  - INJURY [None]
  - GINGIVAL BLEEDING [None]
  - DEAFNESS UNILATERAL [None]
  - KYPHOSCOLIOSIS [None]
  - PEPTIC ULCER [None]
  - OSTEOPENIA [None]
  - OESOPHAGITIS [None]
  - CHEST PAIN [None]
  - WEIGHT DECREASED [None]
  - EXPOSED BONE IN JAW [None]
  - INFECTION [None]
  - ABSCESS JAW [None]
  - BONE LESION [None]
  - FISTULA [None]
  - OTITIS MEDIA [None]
  - ANAEMIA [None]
  - HEPATIC CYST [None]
  - GAIT DISTURBANCE [None]
  - LYMPHADENOPATHY [None]
  - OSTEOMYELITIS [None]
  - HIATUS HERNIA [None]
  - KYPHOSIS [None]
  - DEHYDRATION [None]
  - GASTROOESOPHAGEAL REFLUX DISEASE [None]
  - RHEUMATOID ARTHRITIS [None]
  - SWELLING FACE [None]
  - HAEMORRHAGE [None]
  - GINGIVAL PAIN [None]
  - CELLULITIS [None]
  - BARRETT'S OESOPHAGUS [None]
  - CACHEXIA [None]
  - MONOCLONAL GAMMOPATHY [None]
  - BACK PAIN [None]
  - TRICUSPID VALVE INCOMPETENCE [None]
  - RENAL FAILURE ACUTE [None]
  - OSTEONECROSIS OF JAW [None]
  - GASTRIC ULCER [None]
  - PLASMACYTOMA [None]
  - CHRONIC SINUSITIS [None]
  - DYSURIA [None]
  - MITRAL VALVE INCOMPETENCE [None]
  - SPINAL COMPRESSION FRACTURE [None]
